FAERS Safety Report 19505168 (Version 1)
Quarter: 2021Q3

REPORT INFORMATION
  Report Type: Report from Study
  Country: BR (occurrence: BR)
  Receive Date: 20210708
  Receipt Date: 20210708
  Transmission Date: 20211014
  Serious: Yes (Other)
  Sender: FDA-Public Use
  Company Number: NVSC2021BR100708

PATIENT
  Age: 39 Year
  Sex: Male
  Weight: 96 kg

DRUGS (1)
  1. COSENTYX [Suspect]
     Active Substance: SECUKINUMAB
     Indication: ANKYLOSING SPONDYLITIS
     Dosage: 150 MG, QW
     Route: 065
     Dates: start: 20210409, end: 20210517

REACTIONS (15)
  - Muscle tightness [Recovered/Resolved]
  - Muscle tightness [Recovering/Resolving]
  - Pharyngitis [Recovered/Resolved]
  - Nausea [Recovering/Resolving]
  - Oropharyngeal discomfort [Recovered/Resolved]
  - Tonsillitis [Recovered/Resolved]
  - Fatigue [Recovered/Resolved]
  - Fatigue [Recovering/Resolving]
  - Headache [Recovering/Resolving]
  - Uveitis [Not Recovered/Not Resolved]
  - Tonsillar inflammation [Recovered/Resolved]
  - Nausea [Recovered/Resolved]
  - Headache [Recovered/Resolved]
  - Influenza [Recovering/Resolving]
  - Asthenia [Not Recovered/Not Resolved]

NARRATIVE: CASE EVENT DATE: 20210410
